FAERS Safety Report 6737964-7 (Version None)
Quarter: 2010Q2

REPORT INFORMATION
  Report Type: 
  Country: None (occurrence: None)
  Receive Date: 20100520
  Receipt Date: 20100505
  Transmission Date: 20101027
  Serious: Yes (Hospitalization)
  Sender: FDA-Public Use
  Company Number: 2010-002

PATIENT
  Age: 18 Year
  Sex: Male

DRUGS (1)
  1. DEGREE MEN DEODORANT INTENSE SPORT [Suspect]
     Indication: PROPHYLAXIS
     Dosage: TWO TIMES UNDER ARMS

REACTIONS (4)
  - BURNING SENSATION [None]
  - INFECTION [None]
  - PRURITUS [None]
  - SWELLING [None]
